FAERS Safety Report 25364676 (Version 1)
Quarter: 2025Q2

REPORT INFORMATION
  Report Type: Spontaneous
  Country: NO (occurrence: NO)
  Receive Date: 20250527
  Receipt Date: 20250527
  Transmission Date: 20250716
  Serious: Yes (Hospitalization, Other)
  Sender: MYLAN
  Company Number: NO-GSK-NO2025EME015624

PATIENT
  Age: 47 Year
  Sex: Female

DRUGS (20)
  1. ZOLOFT [Suspect]
     Active Substance: SERTRALINE HYDROCHLORIDE
     Indication: Product used for unknown indication
  2. ZOLOFT [Suspect]
     Active Substance: SERTRALINE HYDROCHLORIDE
     Route: 065
  3. ZOLOFT [Suspect]
     Active Substance: SERTRALINE HYDROCHLORIDE
     Route: 065
  4. ZOLOFT [Suspect]
     Active Substance: SERTRALINE HYDROCHLORIDE
  5. LAMICTAL [Suspect]
     Active Substance: LAMOTRIGINE
     Indication: Bipolar disorder
     Dates: start: 20100805, end: 20230610
  6. LAMICTAL [Suspect]
     Active Substance: LAMOTRIGINE
     Route: 065
     Dates: start: 20100805, end: 20230610
  7. LAMICTAL [Suspect]
     Active Substance: LAMOTRIGINE
     Route: 065
     Dates: start: 20100805, end: 20230610
  8. LAMICTAL [Suspect]
     Active Substance: LAMOTRIGINE
     Dates: start: 20100805, end: 20230610
  9. RISPERDAL [Suspect]
     Active Substance: RISPERIDONE
     Indication: Nightmare
  10. RISPERDAL [Suspect]
     Active Substance: RISPERIDONE
     Route: 065
  11. RISPERDAL [Suspect]
     Active Substance: RISPERIDONE
     Route: 065
  12. RISPERDAL [Suspect]
     Active Substance: RISPERIDONE
  13. VALPROATE SODIUM [Suspect]
     Active Substance: VALPROATE SODIUM
     Indication: Product used for unknown indication
  14. VALPROATE SODIUM [Suspect]
     Active Substance: VALPROATE SODIUM
     Route: 065
  15. VALPROATE SODIUM [Suspect]
     Active Substance: VALPROATE SODIUM
     Route: 065
  16. VALPROATE SODIUM [Suspect]
     Active Substance: VALPROATE SODIUM
  17. ABILIFY [Suspect]
     Active Substance: ARIPIPRAZOLE
     Indication: Product used for unknown indication
  18. ABILIFY [Suspect]
     Active Substance: ARIPIPRAZOLE
     Route: 065
  19. ABILIFY [Suspect]
     Active Substance: ARIPIPRAZOLE
     Route: 065
  20. ABILIFY [Suspect]
     Active Substance: ARIPIPRAZOLE

REACTIONS (18)
  - Gastric ulcer [Unknown]
  - Chest pain [Not Recovered/Not Resolved]
  - Fall [Unknown]
  - Injury [Unknown]
  - Pain [Unknown]
  - Bone pain [Unknown]
  - Impaired quality of life [Unknown]
  - Condition aggravated [Unknown]
  - Amnesia [Not Recovered/Not Resolved]
  - Anger [Unknown]
  - Memory impairment [Unknown]
  - Ataxia [Unknown]
  - Tremor [Unknown]
  - Headache [Unknown]
  - Nightmare [Unknown]
  - Fatigue [Unknown]
  - Asthenia [Unknown]
  - Disturbance in attention [Unknown]

NARRATIVE: CASE EVENT DATE: 20150813
